FAERS Safety Report 23275304 (Version 3)
Quarter: 2024Q1

REPORT INFORMATION
  Report Type: Spontaneous
  Country: BR (occurrence: BR)
  Receive Date: 20231208
  Receipt Date: 20240101
  Transmission Date: 20240410
  Serious: Yes (Other)
  Sender: FDA-Public Use
  Company Number: BR-BAXTER-2023BAX037303

PATIENT
  Age: 42 Year
  Sex: Female
  Weight: 55 kg

DRUGS (7)
  1. IRON [Suspect]
     Active Substance: IRON
     Indication: Polychromasia
     Dosage: (20 MG/ML) 200 MG (2 AMPUOLES) DILUTED IN 250 ML OF 0.9% SALINE SOLUTION ADMINSTERED VIA ENDOVENOUS
     Route: 042
  2. IRON [Suspect]
     Active Substance: IRON
     Indication: Anisocytosis
  3. IRON [Suspect]
     Active Substance: IRON
     Indication: Microcytosis
  4. SODIUM CHLORIDE [Suspect]
     Active Substance: SODIUM CHLORIDE
     Indication: Medication dilution
     Dosage: 250 ML OF 0.9% SALINE SOLUTION USED TO DILUTE 200 MG OF SUCROFER, ADMINISTERED VIA ENDOVENOUS ROUTE
     Route: 042
  5. CEFTRIAXONE [Suspect]
     Active Substance: CEFTRIAXONE\CEFTRIAXONE SODIUM
     Indication: Urinary tract infection
     Dosage: 1 G ONCE A DAY VIA ENDOVENOUS ROUTE
     Route: 042
     Dates: start: 20231124, end: 20231124
  6. CELESTONE SOLUSPAN [Suspect]
     Active Substance: BETAMETHASONE ACETATE\BETAMETHASONE SODIUM PHOSPHATE
     Indication: Prenatal care
     Dosage: 2 ML AT AN UNSPECIFIED FREQUENCY
     Route: 030
     Dates: start: 20231124, end: 20231124
  7. CREON [Suspect]
     Active Substance: PANCRELIPASE AMYLASE\PANCRELIPASE LIPASE\PANCRELIPASE PROTEASE
     Indication: Pancreatic failure
     Dosage: UNK
     Route: 048

REACTIONS (8)
  - Anaphylactic reaction [Recovered/Resolved]
  - Pharyngeal swelling [Recovered/Resolved]
  - Burning sensation [Recovered/Resolved]
  - Asphyxia [Recovered/Resolved]
  - Dyspnoea [Recovered/Resolved]
  - Oedema [Recovered/Resolved]
  - Urticaria [Recovered/Resolved]
  - Maternal exposure during pregnancy [Recovered/Resolved]

NARRATIVE: CASE EVENT DATE: 20231124
